FAERS Safety Report 18326164 (Version 1)
Quarter: 2020Q3

REPORT INFORMATION
  Report Type: Spontaneous
  Country: KR (occurrence: KR)
  Receive Date: 20200929
  Receipt Date: 20200929
  Transmission Date: 20201103
  Serious: Yes (Other)
  Sender: FDA-Public Use
  Company Number: KR-FRESENIUS KABI-FK202010027

PATIENT
  Age: 60 Year
  Sex: Female

DRUGS (2)
  1. MEPIVACAINE INJECTION (MANUFACTURER UNKNOWN) [Suspect]
     Active Substance: MEPIVACAINE HYDROCHLORIDE
     Indication: BACK PAIN
     Route: 008
  2. DEXAMETHASONE INJECTION (MANUFACTURER UNKNOWN) [Suspect]
     Active Substance: DEXAMETHASONE
     Indication: BACK PAIN
     Route: 008

REACTIONS (3)
  - Meningitis chemical [Recovered/Resolved]
  - Pneumocephalus [Recovered/Resolved]
  - Anaesthetic complication [Recovered/Resolved]
